FAERS Safety Report 4577648-7 (Version None)
Quarter: 2005Q1

REPORT INFORMATION
  Report Type: 
  Country: None (occurrence: None)
  Receive Date: 20050210
  Receipt Date: 20041209
  Transmission Date: 20050727
  Serious: Yes (Disabling, Other)
  Sender: FDA-Public Use
  Company Number: DE-MERCK-0412DEU00122

PATIENT
  Age: 52 Year
  Sex: Male

DRUGS (2)
  1. VIOXX [Suspect]
     Route: 048
     Dates: start: 20030101, end: 20040613
  2. DICLOFENAC SODIUM [Concomitant]
     Route: 065
     Dates: start: 20000101

REACTIONS (4)
  - OCULAR VASCULAR DISORDER [None]
  - OEDEMA PERIPHERAL [None]
  - PAPILLOEDEMA [None]
  - VISION BLURRED [None]
